FAERS Safety Report 6415535-X (Version None)
Quarter: 2009Q4

REPORT INFORMATION
  Report Type: 
  Country: None (occurrence: None)
  Receive Date: 20091022
  Receipt Date: 20091007
  Transmission Date: 20100525
  Serious: Yes (Death, Hospitalization)
  Sender: FDA-Public Use
  Company Number: 2009AL006486

PATIENT
  Age: 76 Year
  Sex: Female

DRUGS (2)
  1. PHENOBARBITAL TAB [Suspect]
     Indication: EPILEPSY
     Dosage: UNKNOWN
  2. DICUMAROL [Concomitant]

REACTIONS (5)
  - ATRIAL FIBRILLATION [None]
  - HAEMOGLOBIN DECREASED [None]
  - RED BLOOD CELLS URINE POSITIVE [None]
  - TOXIC EPIDERMAL NECROLYSIS [None]
  - WHITE BLOOD CELLS URINE POSITIVE [None]
